FAERS Safety Report 5816327-2 (Version None)
Quarter: 2008Q3

REPORT INFORMATION
  Report Type: 
  Country: None (occurrence: None)
  Receive Date: 20080716
  Receipt Date: 20080125
  Transmission Date: 20090109
  Serious: Yes (Other)
  Sender: FDA-Public Use
  Company Number: 2008US000397

PATIENT
  Age: 73 Year
  Sex: Female

DRUGS (16)
  1. ADENOSCAN [Suspect]
     Indication: SCAN MYOCARDIAL PERFUSION
     Dosage: IV NOS
     Route: 042
     Dates: start: 20071022, end: 20071022
  2. THALLIUM (201 TL) (THALLIUM (201 TL)) [Concomitant]
  3. TECHNETIUM (99M TC) SESTAMIBI (TECHNETIUM (99M TC) SESTAMIBI) [Concomitant]
  4. VICODIN [Concomitant]
  5. KLOR-CON [Concomitant]
  6. CLONIDINE [Concomitant]
  7. NORVASC [Concomitant]
  8. HYDROCHLOROTHIAZIDE [Concomitant]
  9. AMBIEN [Concomitant]
  10. LOPID [Concomitant]
  11. AMANTADINE HCL [Concomitant]
  12. FLEXERIL [Concomitant]
  13. REGLAN [Concomitant]
  14. PROTONIX [Concomitant]
  15. TOPROL-XL [Concomitant]
  16. DOXAZOSIN (DOXAZOSIN MESILATE) [Concomitant]

REACTIONS (3)
  - BLOOD PRESSURE DECREASED [None]
  - DIZZINESS [None]
  - DYSPNOEA [None]
